FAERS Safety Report 19769275 (Version 1)
Quarter: 2021Q3

REPORT INFORMATION
  Report Type: Spontaneous
  Country: US (occurrence: US)
  Receive Date: 20210831
  Receipt Date: 20210831
  Transmission Date: 20211014
  Serious: Yes (Disabling, Other)
  Sender: FDA-Public Use
  Company Number: None

PATIENT
  Age: 69 Year
  Sex: Female
  Weight: 96.75 kg

DRUGS (8)
  1. ACIPHEX [Concomitant]
     Active Substance: RABEPRAZOLE SODIUM
  2. CENTRUM SILVER VITAMINS [Concomitant]
  3. ROBITUSSIN COUGH GELS [Concomitant]
  4. TOPIRAMATE. [Suspect]
     Active Substance: TOPIRAMATE
     Indication: ESSENTIAL TREMOR
     Route: 048
     Dates: start: 20210820, end: 20210827
  5. LIPRINISIL [Concomitant]
  6. TOPIRAMATE. [Suspect]
     Active Substance: TOPIRAMATE
     Indication: SEIZURE
     Route: 048
     Dates: start: 20210820, end: 20210827
  7. TRAMADOL. [Concomitant]
     Active Substance: TRAMADOL
  8. CRESTOR [Concomitant]
     Active Substance: ROSUVASTATIN CALCIUM

REACTIONS (5)
  - Condition aggravated [None]
  - Fall [None]
  - Catatonia [None]
  - Unresponsive to stimuli [None]
  - Gait disturbance [None]

NARRATIVE: CASE EVENT DATE: 20210828
